FAERS Safety Report 4342301-1 (Version None)
Quarter: 2004Q2

REPORT INFORMATION
  Report Type: 
  Country: None (occurrence: None)
  Receive Date: 20040420
  Receipt Date: 20040420
  Transmission Date: 20050107
  Serious: Yes (Hospitalization)
  Sender: FDA-Public Use
  Company Number: None

PATIENT
  Age: 77 Year
  Sex: Female

DRUGS (12)
  1. SEROQUEL [Suspect]
     Indication: INSOMNIA
     Dosage: 100 MG Q DAY ORAL
     Route: 048
     Dates: start: 20040215, end: 20040308
  2. SYNTHROID [Concomitant]
  3. MOBIC [Concomitant]
  4. TRAMADOL HCL [Concomitant]
  5. ZOLOFT [Concomitant]
  6. LORAZEPAM [Concomitant]
  7. ASPIRIN [Concomitant]
  8. METOPROLOL [Concomitant]
  9. FUROSEAMIDE [Concomitant]
  10. KLOR-CON [Concomitant]
  11. NEXIUM [Concomitant]
  12. STOOL SOFTENER [Concomitant]

REACTIONS (4)
  - CONFUSIONAL STATE [None]
  - FALL [None]
  - GAIT DISTURBANCE [None]
  - HALLUCINATIONS, MIXED [None]
